FAERS Safety Report 9348689 (Version 1)
Quarter: 2013Q2

REPORT INFORMATION
  Report Type: Spontaneous
  Country: US (occurrence: US)
  Receive Date: 20130614
  Receipt Date: 20130614
  Transmission Date: 20140414
  Serious: Yes (Other)
  Sender: FDA-Public Use
  Company Number: US-JNJFOC-20130605221

PATIENT
  Age: 53 Year
  Sex: Female
  Weight: 74.83 kg

DRUGS (7)
  1. IBUPROFEN [Suspect]
     Indication: PAIN
     Dosage: AS NEEDED
     Route: 065
  2. ZZZQUIL [Interacting]
     Indication: INSOMNIA
     Route: 065
  3. ADVIL PM [Interacting]
     Indication: PAIN
     Dosage: ALTERNATE DAY
     Dates: start: 2012
  4. ADVIL PM [Interacting]
     Indication: INSOMNIA
     Dosage: ALTERNATE DAY
     Dates: start: 2012
  5. MELATONIN [Interacting]
     Indication: INSOMNIA
     Route: 065
  6. UNSPECIFIED INGREDIENT [Interacting]
     Indication: PRODUCT USED FOR UNKNOWN INDICATION
     Route: 065
  7. OXYCODONE HYDROCHLORIDE [Interacting]
     Indication: PAIN
     Route: 065

REACTIONS (7)
  - Drug interaction [Unknown]
  - Diarrhoea [Unknown]
  - Knee arthroplasty [Unknown]
  - Local swelling [Unknown]
  - Erythema [Unknown]
  - Muscle spasms [Unknown]
  - Uterine disorder [Unknown]
